FAERS Safety Report 23600144 (Version 1)
Quarter: 2024Q1

REPORT INFORMATION
  Report Type: Spontaneous
  Country: BE (occurrence: BE)
  Receive Date: 20240306
  Receipt Date: 20240306
  Transmission Date: 20240410
  Serious: Yes (Life-Threatening, Hospitalization)
  Sender: FDA-Public Use
  Company Number: BE-MYLANLABS-2024M1019058

PATIENT
  Age: 30 Year
  Sex: Female

DRUGS (4)
  1. PROTHIPENDYL [Suspect]
     Active Substance: PROTHIPENDYL
     Indication: Sleep disorder
     Dosage: 50 DOSAGE FORM
     Route: 048
  2. PROTHIPENDYL [Suspect]
     Active Substance: PROTHIPENDYL
     Indication: Anxiety
  3. ZOLPIDEM [Suspect]
     Active Substance: ZOLPIDEM TARTRATE
     Indication: Anxiety
     Dosage: 10 DOSAGE FORM; 10 TABLETS
     Route: 048
  4. LORAZEPAM [Suspect]
     Active Substance: LORAZEPAM
     Indication: Anxiety
     Dosage: 40 DOSAGE FORM; 40 TABLETS
     Route: 048

REACTIONS (6)
  - Intentional overdose [Recovered/Resolved]
  - Toxicity to various agents [Recovered/Resolved]
  - Electrocardiogram QT prolonged [Recovered/Resolved]
  - Torsade de pointes [Recovered/Resolved]
  - Ventricular fibrillation [Recovered/Resolved]
  - Haemodynamic instability [Recovered/Resolved]
